FAERS Safety Report 8759758 (Version 1)
Quarter: 2012Q4

REPORT INFORMATION
  Report Type: Report from Study
  Country: DE (occurrence: DE)
  Receive Date: 20120829
  Receipt Date: 20120829
  Transmission Date: 20130627
  Serious: Yes (Hospitalization)
  Sender: FDA-Public Use
  Company Number: DE-ELI_LILLY_AND_COMPANY-DE201111008565

PATIENT
  Age: 76 Year
  Sex: Male
  Weight: 80 kg

DRUGS (2)
  1. EXENATIDE LONG ACTING RELEASE 2MG [Suspect]
     Indication: TYPE 2 DIABETES MELLITUS
     Dosage: UNK, unknown
     Dates: start: 20111117
  2. INSULIN [Concomitant]
     Indication: HYPERGLYCAEMIA
     Dosage: 20 DF, tid
     Route: 058
     Dates: start: 20111125

REACTIONS (1)
  - Hyperglycaemia [Recovered/Resolved]
